FAERS Safety Report 18673996 (Version 1)
Quarter: 2020Q4

REPORT INFORMATION
  Report Type: Spontaneous
  Country: GB (occurrence: GB)
  Receive Date: 20201229
  Receipt Date: 20201229
  Transmission Date: 20210114
  Serious: Yes (Death, Other)
  Sender: FDA-Public Use
  Company Number: GB-ACCORD-212250

PATIENT
  Age: 35 Year
  Sex: Female
  Weight: 65 kg

DRUGS (6)
  1. TACROLIMUS. [Suspect]
     Active Substance: TACROLIMUS
     Indication: PRODUCT USED FOR UNKNOWN INDICATION
  2. ACICLOVIR [Concomitant]
     Active Substance: ACYCLOVIR
  3. ANIDULAFUNGIN [Concomitant]
     Active Substance: ANIDULAFUNGIN
  4. AMIKACIN. [Concomitant]
     Active Substance: AMIKACIN
  5. TIGECYCLINE. [Interacting]
     Active Substance: TIGECYCLINE
     Indication: BACTERIAL INFECTION
  6. COLISTIN [Concomitant]
     Active Substance: COLISTIN

REACTIONS (4)
  - Pathogen resistance [Unknown]
  - Drug interaction [Unknown]
  - Sepsis [Fatal]
  - Immunosuppressant drug level increased [Unknown]
